FAERS Safety Report 5097500-0 (Version None)
Quarter: 2006Q3

REPORT INFORMATION
  Report Type: 
  Country: None (occurrence: None)
  Receive Date: 20060901
  Receipt Date: 20060816
  Transmission Date: 20061208
  Serious: Yes (Life-Threatening, Hospitalization, Disabling, Other)
  Sender: FDA-Public Use
  Company Number: 2006RR-03526

PATIENT
  Age: 72 Year
  Sex: Female

DRUGS (11)
  1. CLARITHROMYCIN [Suspect]
     Dosage: 500 MG, BID, ORAL
     Route: 048
     Dates: start: 20060706
  2. DIGOXIN [Suspect]
     Dosage: 125 UG, QD, ORAL; 500 UG
     Route: 048
     Dates: start: 20060704, end: 20060710
  3. DIGOXIN [Suspect]
     Dosage: 125 UG, QD, ORAL; 500 UG
     Route: 048
     Dates: start: 20060703
  4. ALLOPURINOL [Concomitant]
  5. AMOXICILLIN [Concomitant]
  6. ASPIRIN [Concomitant]
  7. ATENOLOL [Concomitant]
  8. FOSINOPRIL SODIUM [Concomitant]
  9. GLICLAZIDE [Concomitant]
  10. OMEPRAZOLE [Concomitant]
  11. RAMIPRIL [Concomitant]

REACTIONS (4)
  - CARDIAC ARREST [None]
  - DRUG DEPENDENCE [None]
  - NODAL ARRHYTHMIA [None]
  - SUPRAVENTRICULAR TACHYCARDIA [None]
